FAERS Safety Report 4977648-9 (Version None)
Quarter: 2006Q2

REPORT INFORMATION
  Report Type: 
  Country: None (occurrence: None)
  Receive Date: 20060420
  Receipt Date: 20051114
  Transmission Date: 20061013
  Serious: No
  Sender: FDA-Public Use
  Company Number: US-GLAXOSMITHKLINE-A0582151A

PATIENT
  Sex: Male

DRUGS (5)
  1. ESKALITH [Suspect]
     Dosage: 450MG THREE TIMES PER DAY
     Route: 048
  2. RELAFEN [Concomitant]
  3. HYDROCHLOROTHIAZIDE [Concomitant]
  4. TOPROL-XL [Concomitant]
  5. PRAVACHOL [Concomitant]

REACTIONS (1)
  - DEPRESSION [None]
